FAERS Safety Report 7937025-5 (Version None)
Quarter: 2011Q4

REPORT INFORMATION
  Report Type: 
  Country: None (occurrence: None)
  Receive Date: 20111123
  Receipt Date: 20111109
  Transmission Date: 20120403
  Serious: Yes (Other)
  Sender: FDA-Public Use
  Company Number: BR-ROCHE-798287

PATIENT
  Sex: Female
  Weight: 76 kg

DRUGS (3)
  1. ALBENDAZOLE [Suspect]
     Indication: INFESTATION
  2. MABTHERA [Suspect]
     Indication: ARTHRITIS
     Dosage: DOSE AND FREQUENCY: NOT PROVIDED
     Route: 065
     Dates: start: 20090301, end: 20100501
  3. NIMESULIDE [Suspect]
     Indication: PRODUCT USED FOR UNKNOWN INDICATION

REACTIONS (2)
  - HEPATITIS [None]
  - DRUG INEFFECTIVE [None]
